FAERS Safety Report 19429173 (Version 1)
Quarter: 2021Q2

REPORT INFORMATION
  Report Type: Spontaneous
  Country: US (occurrence: US)
  Receive Date: 20210617
  Receipt Date: 20210617
  Transmission Date: 20210717
  Serious: Yes (Other)
  Sender: FDA-Public Use
  Company Number: None

PATIENT
  Age: 48 Year
  Sex: Female
  Weight: 124.65 kg

DRUGS (1)
  1. PRIVIGEN [Suspect]
     Active Substance: HUMAN IMMUNOGLOBULIN G
     Indication: POLYNEUROPATHY
     Dosage: ?          OTHER FREQUENCY:QD FOR 3 DAYS;?
     Route: 042
     Dates: start: 20210612, end: 20210613

REACTIONS (1)
  - Headache [None]

NARRATIVE: CASE EVENT DATE: 20210613
